FAERS Safety Report 18038708 (Version 2)
Quarter: 2020Q3

REPORT INFORMATION
  Report Type: Spontaneous
  Country: US (occurrence: US)
  Receive Date: 20200717
  Receipt Date: 20200828
  Transmission Date: 20201103
  Serious: No
  Sender: FDA-Public Use
  Company Number: US-PFIZER INC-2020265274

PATIENT
  Age: 1 Year
  Sex: Male
  Weight: 12.5 kg

DRUGS (2)
  1. GENOTROPIN MQ [Suspect]
     Active Substance: SOMATROPIN
     Indication: PRADER-WILLI SYNDROME
  2. GENOTROPIN MQ [Suspect]
     Active Substance: SOMATROPIN
     Indication: GROWTH HORMONE DEFICIENCY
     Dosage: 0.4 MG, DAILY
     Route: 058

REACTIONS (1)
  - Scoliosis [Unknown]
